FAERS Safety Report 9519190 (Version 1)
Quarter: 2013Q1

REPORT INFORMATION
  Report Type: Spontaneous
  Country: US (occurrence: None)
  Receive Date: 20130305
  Receipt Date: 20130305
  Transmission Date: 20140127
  Serious: Yes (Other)
  Sender: FDA-Public Use
  Company Number: 163-21880-12101827

PATIENT
  Age: 70 Year
  Sex: Male

DRUGS (2)
  1. REVLIMID [Suspect]
     Indication: PLASMA CELL MYELOMA
     Dosage: 15 MG, 21 IN 21 D, PO
     Route: 048
     Dates: start: 20120915
  2. DEXAMETHASONE ( DEXAMETHASONE) (UNKNOWN) [Concomitant]

REACTIONS (4)
  - Swelling face [None]
  - Erythema [None]
  - Drug dose omission [None]
  - Dyspnoea [None]
